FAERS Safety Report 6359890-8 (Version None)
Quarter: 2009Q3

REPORT INFORMATION
  Report Type: 
  Country: None (occurrence: None)
  Receive Date: 20090917
  Receipt Date: 20090909
  Transmission Date: 20100115
  Serious: Yes (Death, Hospitalization)
  Sender: FDA-Public Use
  Company Number: US-ELI_LILLY_AND_COMPANY-US200908006209

PATIENT
  Sex: Female

DRUGS (11)
  1. PEMETREXED [Suspect]
     Indication: NON-SMALL CELL LUNG CANCER
     Dosage: 500 MG/M2, OTHER
     Route: 042
  2. TARCEVA [Suspect]
     Indication: NON-SMALL CELL LUNG CANCER
     Dosage: 150 MG, DAILY (1/D)
  3. VITAMIN B-12 [Concomitant]
  4. FOLIC ACID [Concomitant]
  5. OMEPRAZOLE [Concomitant]
  6. NICARDIPINE HYDROCHLORIDE [Concomitant]
  7. PRAVASTATIN [Concomitant]
  8. ALPRAZOLAM [Concomitant]
  9. DOXYCYCLINE [Concomitant]
  10. PROCHLORPERAZINE [Concomitant]
  11. ONDANSETRON [Concomitant]

REACTIONS (3)
  - ACUTE RESPIRATORY DISTRESS SYNDROME [None]
  - DEATH [None]
  - MYOCARDIAL INFARCTION [None]
